FAERS Safety Report 12511094 (Version 1)
Quarter: 2016Q2

REPORT INFORMATION
  Report Type: Report from Study
  Country: US (occurrence: AU)
  Receive Date: 20160629
  Receipt Date: 20160629
  Transmission Date: 20160815
  Serious: Yes (Hospitalization)
  Sender: FDA-Public Use
  Company Number: US-PFIZER INC-2016300969

PATIENT
  Age: 78 Year
  Sex: Female

DRUGS (43)
  1. METOPROLOL. [Concomitant]
     Active Substance: METOPROLOL
     Indication: HYPERTENSION
     Dosage: 25 MG, (12.5 MG, 2 IN 1 D)
     Route: 048
     Dates: start: 201511
  2. FRUSEMIDE [Concomitant]
     Active Substance: FUROSEMIDE
     Indication: PROPHYLAXIS
  3. PARACETAMOL [Concomitant]
     Active Substance: ACETAMINOPHEN
     Indication: BACTERAEMIA
  4. CEPHALEXIN. [Concomitant]
     Active Substance: CEPHALEXIN
     Indication: URINARY TRACT INFECTION
     Dosage: 250 MG, 1 IN 1 D
     Route: 048
     Dates: start: 20151214, end: 20151219
  5. CEPHALEXIN. [Concomitant]
     Active Substance: CEPHALEXIN
     Indication: PROPHYLAXIS
     Dosage: 250 MG,  1 IN 1 D
     Route: 048
     Dates: start: 20160110
  6. SLOW K [Concomitant]
     Active Substance: POTASSIUM CHLORIDE
     Indication: HYPOKALAEMIA
     Dosage: 3 TABLET, AS NEEDED
     Route: 048
     Dates: start: 20151212, end: 20151212
  7. SLOW K [Concomitant]
     Active Substance: POTASSIUM CHLORIDE
     Dosage: 4 TABLET, (2 TABLET, 2 IN 1D)
     Route: 048
     Dates: start: 20160106
  8. MAGMIN [Concomitant]
     Active Substance: MAGNESIUM ASPARTATE
     Indication: BLOOD ELECTROLYTES
     Dosage: 2 TABLET, AS NEEDED
     Route: 048
     Dates: start: 20151220
  9. METOCLOPRAMIDE. [Concomitant]
     Active Substance: METOCLOPRAMIDE
     Indication: NAUSEA
     Dosage: 10 MG, AS NEEDED
     Route: 048
     Dates: start: 20151226
  10. PARACETAMOL SR [Concomitant]
     Indication: ARTHRALGIA
     Dosage: 1 G, AS NEEDED
     Route: 048
     Dates: start: 20160220
  11. VENETOCLAX [Suspect]
     Active Substance: VENETOCLAX
     Dosage: 400 MG, 1 IN 1 D
     Route: 048
     Dates: start: 20160502
  12. FRUSEMIDE [Concomitant]
     Active Substance: FUROSEMIDE
     Indication: FLUID RETENTION
     Dosage: 80 MG, (40 MG, 2 IN 1 D)
     Route: 048
     Dates: start: 201511
  13. PANTOPRAZOLE [Concomitant]
     Active Substance: PANTOPRAZOLE SODIUM
     Indication: GASTROOESOPHAGEAL REFLUX DISEASE
     Dosage: 80 MG, (40 MG, 2 IN 1 D)
     Route: 048
     Dates: start: 2001
  14. ENDONE [Concomitant]
     Active Substance: OXYCODONE HYDROCHLORIDE
     Indication: ARTHRALGIA
     Dosage: 5 MG, AS NEEDED
     Route: 048
     Dates: start: 20160220
  15. FILGRASTIM [Concomitant]
     Active Substance: FILGRASTIM
     Indication: PROPHYLAXIS
  16. URAL /00388201/ [Concomitant]
     Indication: URINARY TRACT INFECTION
     Dosage: 4 SACHET, (1 SACHET, 4 IN 1 D)
     Route: 048
     Dates: start: 20160320, end: 20160326
  17. URAL /00388201/ [Concomitant]
     Indication: PROPHYLAXIS
     Dosage: 2 SACHET, (1 SACHET, 2 IN 1 D)
     Route: 048
     Dates: start: 20160327
  18. VENETOCLAX [Suspect]
     Active Substance: VENETOCLAX
     Dosage: 200 MG, 1 IN 1 D
     Route: 048
     Dates: start: 20151210, end: 20151210
  19. MAGNESIUM ASPARTATE [Concomitant]
     Active Substance: MAGNESIUM ASPARTATE
     Indication: PROPHYLAXIS
     Dosage: 1 G, 1 IN 1 D
     Route: 048
     Dates: start: 2005
  20. VALACYCLOVIR [Concomitant]
     Active Substance: VALACYCLOVIR HYDROCHLORIDE
     Indication: ANTIVIRAL PROPHYLAXIS
     Dosage: 1000 MG, (500 MG, 2 IN 1 D)
     Route: 048
     Dates: start: 20151107
  21. NORMAL SALINE SOLUTION [Concomitant]
     Indication: TUMOUR LYSIS SYNDROME
     Dosage: 18 L, UNK
     Route: 042
     Dates: start: 20151204, end: 20151213
  22. ONDANSETRON [Concomitant]
     Active Substance: ONDANSETRON
     Indication: PROPHYLAXIS
     Dosage: 8 MG, AS NEEDED
     Route: 048
     Dates: start: 20160326
  23. ALLOPURINOL. [Concomitant]
     Active Substance: ALLOPURINOL
     Indication: PROPHYLAXIS
  24. CYTARABINE. [Suspect]
     Active Substance: CYTARABINE
     Indication: ACUTE MYELOID LEUKAEMIA
     Dosage: 20 MG/M2, 1 IN 1 D
     Route: 058
     Dates: start: 20151207
  25. VENETOCLAX [Suspect]
     Active Substance: VENETOCLAX
     Indication: ACUTE MYELOID LEUKAEMIA
     Dosage: 50 MG, 1 IN 1 D
     Route: 048
     Dates: start: 20151208, end: 20151208
  26. SLOW K [Concomitant]
     Active Substance: POTASSIUM CHLORIDE
     Indication: PROPHYLAXIS
     Dosage: 6 TABLET, (2 TABLET, 3 IN 1D)
     Route: 048
     Dates: start: 20151227, end: 20160106
  27. ENDONE [Concomitant]
     Active Substance: OXYCODONE HYDROCHLORIDE
     Indication: BACTERAEMIA
     Dosage: 5 MG, AS NEEDED
     Route: 048
     Dates: start: 20151227, end: 20151227
  28. ALLOPURINOL. [Concomitant]
     Active Substance: ALLOPURINOL
     Indication: TUMOUR LYSIS SYNDROME
     Dosage: 300 MG, UNK
     Route: 048
     Dates: start: 20151112, end: 20151216
  29. VENETOCLAX [Suspect]
     Active Substance: VENETOCLAX
     Dosage: 100 MG, 1 IN 1 D
     Route: 048
     Dates: start: 20151209, end: 20151209
  30. FRUSEMIDE [Concomitant]
     Active Substance: FUROSEMIDE
     Indication: PULMONARY OEDEMA
     Dosage: 250 MG, AS NEEDED
     Route: 040
     Dates: start: 20151209, end: 20151211
  31. BETAHISTINE [Concomitant]
     Active Substance: BETAHISTINE
     Indication: MENIERE^S DISEASE
     Dosage: 16 MG, (8 MG, 2 IN 1 D)
     Route: 048
     Dates: start: 2010
  32. ONDANSETRON [Concomitant]
     Active Substance: ONDANSETRON
     Indication: NAUSEA
     Dosage: 8 MG, AS NEEDED
     Route: 048
     Dates: start: 20151207, end: 20151207
  33. SLOW K [Concomitant]
     Active Substance: POTASSIUM CHLORIDE
     Indication: BLOOD ELECTROLYTES
     Dosage: 4 TABLET, (2 TABLET, 2 IN 1D)
     Route: 048
     Dates: start: 20151220, end: 20151227
  34. METOCLOPRAMIDE. [Concomitant]
     Active Substance: METOCLOPRAMIDE
     Indication: PROPHYLAXIS
     Dosage: 30 MG, (10 MG, 3 IN 1 D)
     Route: 048
     Dates: start: 20160303
  35. NORMAL SALINE SOLUTION [Concomitant]
     Indication: PROPHYLAXIS
  36. NORMAL SALINE SOLUTION [Concomitant]
     Indication: FLUID REPLACEMENT
  37. PARACETAMOL [Concomitant]
     Active Substance: ACETAMINOPHEN
     Indication: OSTEOPOROSIS
     Dosage: 1 G, AS NEEDED
     Route: 048
     Dates: start: 2014
  38. MAGNESIUM ASPARTATE [Concomitant]
     Active Substance: MAGNESIUM ASPARTATE
     Indication: BLOOD ELECTROLYTES
  39. VENETOCLAX [Suspect]
     Active Substance: VENETOCLAX
     Dosage: 400 MG, 1 IN 1 D
     Route: 048
     Dates: start: 20151211, end: 20151211
  40. VENETOCLAX [Suspect]
     Active Substance: VENETOCLAX
     Dosage: 600 MG, 1 IN 1 D
     Route: 048
     Dates: start: 20151212, end: 20160224
  41. PARACETAMOL [Concomitant]
     Active Substance: ACETAMINOPHEN
     Indication: PAIN IN EXTREMITY
  42. MAGMIN [Concomitant]
     Active Substance: MAGNESIUM ASPARTATE
     Indication: PROPHYLAXIS
  43. FILGRASTIM [Concomitant]
     Active Substance: FILGRASTIM
     Indication: NEUTROPENIA
     Dosage: 480 UG, AS NEEDED
     Route: 058
     Dates: start: 20160220

REACTIONS (1)
  - Haematuria [Unknown]

NARRATIVE: CASE EVENT DATE: 20160523
